FAERS Safety Report 9296218 (Version 1)
Quarter: 2013Q2

REPORT INFORMATION
  Report Type: Spontaneous
  Country: US (occurrence: US)
  Receive Date: 20130517
  Receipt Date: 20130517
  Transmission Date: 20140414
  Serious: Yes (Other)
  Sender: FDA-Public Use
  Company Number: US-PFIZER INC-2013147799

PATIENT
  Age: 7 Year
  Sex: Male

DRUGS (4)
  1. OLANZAPINE [Suspect]
     Indication: COMPLEX PARTIAL SEIZURES
     Dosage: UNK
  2. QUETIAPINE FUMARATE [Suspect]
     Indication: COMPLEX PARTIAL SEIZURES
     Dosage: UNK
  3. METHYLPHENIDATE HYDROCHLORIDE [Suspect]
     Indication: COMPLEX PARTIAL SEIZURES
     Dosage: UNK
  4. ZIPRASIDONE HCL [Suspect]
     Indication: COMPLEX PARTIAL SEIZURES
     Dosage: UNK

REACTIONS (7)
  - Extrapyramidal disorder [Unknown]
  - Hallucination [Unknown]
  - Aggression [Unknown]
  - Agitation [Unknown]
  - Psychomotor hyperactivity [Unknown]
  - Off label use [Unknown]
  - Off label use [Unknown]
